FAERS Safety Report 8581339-5 (Version None)
Quarter: 2012Q3

REPORT INFORMATION
  Report Type: 
  Country: None (occurrence: None)
  Receive Date: 20120809
  Receipt Date: 20120808
  Transmission Date: 20120928
  Serious: Yes (Hospitalization)
  Sender: FDA-Public Use
  Company Number: PHHO2006ZA10129

PATIENT
  Sex: Female
  Weight: 29 kg

DRUGS (3)
  1. GLEEVEC [Suspect]
     Indication: CHRONIC MYELOID LEUKAEMIA
     Dosage: 260 MG, UNK
     Route: 048
     Dates: start: 20060412
  2. GLEEVEC [Suspect]
     Dosage: 250 MG, UNK
     Route: 048
     Dates: start: 20060504, end: 20060612
  3. GLEEVEC [Suspect]
     Dosage: 600 MG, UNK
     Route: 048

REACTIONS (8)
  - INFLUENZA [None]
  - NEUTROPENIA [None]
  - PYREXIA [None]
  - ABDOMINAL PAIN UPPER [None]
  - TUBERCULOSIS [None]
  - MYALGIA [None]
  - THROMBOCYTOPENIA [None]
  - SEPSIS [None]
